FAERS Safety Report 12159188 (Version 1)
Quarter: 2016Q1

REPORT INFORMATION
  Report Type: Spontaneous
  Country: US (occurrence: None)
  Receive Date: 20160307
  Receipt Date: 20160307
  Transmission Date: 20160526
  Serious: No
  Sender: FDA-Public Use
  Company Number: None

PATIENT
  Age: 72 Year
  Sex: Female

DRUGS (9)
  1. AFINITOR [Suspect]
     Active Substance: EVEROLIMUS
     Indication: BREAST CANCER
     Route: 048
     Dates: start: 20140305
  2. OXYCODONE [Concomitant]
     Active Substance: OXYCODONE
  3. CITRACAL +D3 [Concomitant]
  4. OMEPRAZOLE. [Concomitant]
     Active Substance: OMEPRAZOLE
  5. NAPROXEN. [Concomitant]
     Active Substance: NAPROXEN
  6. FLUOXETINE [Concomitant]
     Active Substance: FLUOXETINE HYDROCHLORIDE
  7. AFRIN [Concomitant]
     Active Substance: OXYMETAZOLINE
  8. CLARITIN [Concomitant]
     Active Substance: LORATADINE
  9. HYDROCHLOROT [Concomitant]
     Active Substance: HYDROCHLOROTHIAZIDE

REACTIONS (1)
  - Oral pain [None]

NARRATIVE: CASE EVENT DATE: 201602
